FAERS Safety Report 18078778 (Version 1)
Quarter: 2020Q3

REPORT INFORMATION
  Report Type: Spontaneous
  Country: DE (occurrence: DE)
  Receive Date: 20200728
  Receipt Date: 20200728
  Transmission Date: 20201103
  Serious: Yes (Hospitalization)
  Sender: FDA-Public Use
  Company Number: DE-ACCORD-192894

PATIENT
  Age: 5 Year
  Sex: Male
  Weight: 25 kg

DRUGS (1)
  1. RAMIPRIL. [Suspect]
     Active Substance: RAMIPRIL
     Dosage: DAILY DOSE: 5 MG MILLGRAM(S) EVERY 3 TOTAL
     Route: 048
     Dates: start: 20181123

REACTIONS (2)
  - Product administration error [Unknown]
  - Accidental exposure to product by child [Unknown]

NARRATIVE: CASE EVENT DATE: 20181123
